FAERS Safety Report 19646879 (Version 1)
Quarter: 2021Q3

REPORT INFORMATION
  Report Type: Other
  Country: GB (occurrence: GB)
  Receive Date: 20210802
  Receipt Date: 20210802
  Transmission Date: 20211014
  Serious: Yes (Other)
  Sender: FDA-Public Use
  Company Number: GB-ROCHE-2875438

PATIENT

DRUGS (1)
  1. BEVACIZUMAB. [Suspect]
     Active Substance: BEVACIZUMAB
     Indication: SCLERECTOMY
     Dosage: 2.5 MG OF BEVACIZUMAB IN 0.1 ML WAS INJECTED SUBCONJUNCTIVALLY
     Route: 057

REACTIONS (8)
  - Off label use [Unknown]
  - Choroidal detachment [Unknown]
  - Hypotony maculopathy [Unknown]
  - Hypotony of eye [Unknown]
  - Retinopathy [Unknown]
  - Choroidal effusion [Unknown]
  - Choroidal haemorrhage [Unknown]
  - Anterior chamber disorder [Unknown]
